FAERS Safety Report 10146601 (Version 1)
Quarter: 2014Q2

REPORT INFORMATION
  Report Type: Report from Study
  Country: CN (occurrence: CN)
  Receive Date: 20140501
  Receipt Date: 20140501
  Transmission Date: 20141212
  Serious: Yes (Other)
  Sender: FDA-Public Use
  Company Number: CN-BAXTER-2014BAX021877

PATIENT
  Sex: 0

DRUGS (10)
  1. QIFUMEI [Suspect]
     Indication: MAINTENANCE OF ANAESTHESIA
     Dosage: LOW FLOW 0.5-1.5 L/MIN CIRCUIT
     Route: 055
  2. MIDAZOLAM [Suspect]
     Indication: PREMEDICATION
     Route: 051
  3. PROPOFOL [Suspect]
     Indication: GENERAL ANAESTHESIA
     Route: 065
  4. FENTANYL [Suspect]
     Indication: GENERAL ANAESTHESIA
     Route: 065
  5. CISATRACURIUM [Suspect]
     Indication: MUSCLE RELAXANT THERAPY
     Route: 065
  6. OXYGEN [Suspect]
     Indication: MAINTENANCE OF ANAESTHESIA
     Route: 055
  7. NITROUS OXIDE [Suspect]
     Indication: MAINTENANCE OF ANAESTHESIA
     Route: 055
  8. CEFAZOLINE [Suspect]
     Indication: PROPHYLAXIS
     Route: 042
  9. DICLOFENAC [Suspect]
     Indication: ANALGESIC THERAPY
     Route: 065
  10. OMEPRAZOLE [Suspect]
     Indication: PRODUCT USED FOR UNKNOWN INDICATION
     Route: 065

REACTIONS (1)
  - Haemorrhage [Unknown]
